FAERS Safety Report 16933580 (Version 1)
Quarter: 2019Q4

REPORT INFORMATION
  Report Type: Spontaneous
  Country: US (occurrence: US)
  Receive Date: 20191018
  Receipt Date: 20191018
  Transmission Date: 20200122
  Serious: No
  Sender: FDA-Public Use
  Company Number: US-KYOWAKIRIN-2019BKK005889

PATIENT

DRUGS (2)
  1. VITAMIN D3 [Suspect]
     Active Substance: CHOLECALCIFEROL
     Indication: VITAMIN D DECREASED
     Dosage: 2000 IU, DAILY
     Route: 048
     Dates: start: 2019
  2. CRYSVITA [Suspect]
     Active Substance: BUROSUMAB-TWZA
     Indication: HEREDITARY HYPOPHOSPHATAEMIC RICKETS
     Dosage: 80 MG, 1X/4 WEEKS
     Route: 058
     Dates: start: 20190226

REACTIONS (7)
  - Insomnia [Unknown]
  - Chills [Recovered/Resolved]
  - Paraesthesia [Unknown]
  - Paraesthesia [Recovered/Resolved]
  - Vitamin D decreased [Unknown]
  - Hypoaesthesia [Unknown]
  - Contraindicated product prescribed [Unknown]

NARRATIVE: CASE EVENT DATE: 2019
